FAERS Safety Report 7659386-7 (Version None)
Quarter: 2011Q3

REPORT INFORMATION
  Report Type: 
  Country: None (occurrence: None)
  Receive Date: 20110802
  Receipt Date: 20110722
  Transmission Date: 20111222
  Serious: Yes (Hospitalization, Other)
  Sender: FDA-Public Use
  Company Number: 2011SP035058

PATIENT
  Age: 45 Year
  Sex: Female
  Weight: 40.8237 kg

DRUGS (6)
  1. MIRALAX [Suspect]
     Indication: HOSPITALISATION
     Dosage: 17 GM;QD;PO
     Route: 048
     Dates: start: 20110301, end: 20110703
  2. MIRALAX [Suspect]
     Indication: CONSTIPATION
     Dosage: 17 GM;QD;PO
     Route: 048
     Dates: start: 20110301, end: 20110703
  3. MIRALAX [Suspect]
     Indication: ABDOMINAL SYMPTOM
     Dosage: 17 GM;QD;PO
     Route: 048
     Dates: start: 20110301, end: 20110703
  4. KEPPRA [Concomitant]
  5. WARFIN [Concomitant]
  6. ASPIRIN [Concomitant]

REACTIONS (6)
  - HYPOAESTHESIA [None]
  - CONVULSION [None]
  - INCORRECT DRUG ADMINISTRATION DURATION [None]
  - CEREBROVASCULAR ACCIDENT [None]
  - DEHYDRATION [None]
  - VOMITING [None]
